FAERS Safety Report 20370240 (Version 1)
Quarter: 2022Q1

REPORT INFORMATION
  Report Type: Other
  Country: None (occurrence: US)
  Receive Date: 20220124
  Receipt Date: 20220124
  Transmission Date: 20220423
  Serious: Yes (Hospitalization, Other)
  Sender: FDA-Public Use
  Company Number: US-CHEMI SPA-2124239

PATIENT
  Age: 61 Year
  Sex: Male

DRUGS (2)
  1. DECITABINE [Suspect]
     Active Substance: DECITABINE
     Indication: Acute myeloid leukaemia
  2. VENETOCLAX [Concomitant]
     Active Substance: VENETOCLAX

REACTIONS (1)
  - Pancytopenia [Unknown]
